FAERS Safety Report 6589487-6 (Version None)
Quarter: 2010Q1

REPORT INFORMATION
  Report Type: 
  Country: None (occurrence: None)
  Receive Date: 20100212
  Receipt Date: 20100126
  Transmission Date: 20100710
  Serious: Yes (Death)
  Sender: FDA-Public Use
  Company Number: 2010AL000671

PATIENT
  Age: 42 Year
  Sex: Female

DRUGS (4)
  1. THIORIDAZINE HYDROCHLORIDE [Suspect]
  2. PROZAC [Concomitant]
  3. TRIMIPRAMINE [Concomitant]
  4. ALCOHOL [Concomitant]

REACTIONS (1)
  - ALCOHOL USE [None]
